FAERS Safety Report 9734896 (Version 2)
Quarter: 2014Q1

REPORT INFORMATION
  Report Type: Spontaneous
  Country: JP (occurrence: JP)
  Receive Date: 20131206
  Receipt Date: 20140304
  Transmission Date: 20141002
  Serious: Yes (Other)
  Sender: FDA-Public Use
  Company Number: JP-AMGEN-JPNSP2013085601

PATIENT
  Age: 78 Year
  Sex: Male

DRUGS (2)
  1. RANMARK [Suspect]
     Indication: PROSTATE CANCER
     Route: 058
  2. ZOMETA [Concomitant]
     Indication: METASTASES TO BONE
     Route: 042
     Dates: start: 20110609, end: 20120501

REACTIONS (1)
  - Osteitis [Recovering/Resolving]
